FAERS Safety Report 22650529 (Version 2)
Quarter: 2023Q2

REPORT INFORMATION
  Report Type: Spontaneous
  Country: US (occurrence: US)
  Receive Date: 20230628
  Receipt Date: 20230630
  Transmission Date: 20230722
  Serious: Yes (Other)
  Sender: FDA-Public Use
  Company Number: US-BAYER-2023A086473

PATIENT
  Age: 51 Year
  Sex: Female

DRUGS (1)
  1. ASPIRIN [Suspect]
     Active Substance: ASPIRIN
     Indication: Chest pain
     Dosage: UNK
     Dates: start: 20230530, end: 20230601

REACTIONS (2)
  - Chest pain [Recovered/Resolved]
  - Pulmonary thrombosis [None]

NARRATIVE: CASE EVENT DATE: 20230530
